FAERS Safety Report 7459370-2 (Version None)
Quarter: 2011Q2

REPORT INFORMATION
  Report Type: 
  Country: None (occurrence: None)
  Receive Date: 20110504
  Receipt Date: 20110504
  Transmission Date: 20111010
  Serious: Yes (Other)
  Sender: FDA-Public Use
  Company Number: None

PATIENT
  Sex: Female
  Weight: 67.586 kg

DRUGS (1)
  1. DEXILANT [Suspect]
     Dosage: 60 MG 1 A DAY PO
     Route: 048
     Dates: start: 20100702, end: 20101201

REACTIONS (5)
  - WHEEZING [None]
  - REGURGITATION [None]
  - NAUSEA [None]
  - INSOMNIA [None]
  - DYSPHAGIA [None]
